APPROVED DRUG PRODUCT: PHENOXYBENZAMINE HYDROCHLORIDE
Active Ingredient: PHENOXYBENZAMINE HYDROCHLORIDE
Strength: 10MG
Dosage Form/Route: CAPSULE;ORAL
Application: A212568 | Product #001 | TE Code: AB
Applicant: AMNEAL EU LTD
Approved: Oct 27, 2020 | RLD: No | RS: No | Type: RX